FAERS Safety Report 24005947 (Version 2)
Quarter: 2024Q2

REPORT INFORMATION
  Report Type: Spontaneous
  Country: JP (occurrence: JP)
  Receive Date: 20240624
  Receipt Date: 20240626
  Transmission Date: 20240716
  Serious: Yes (Hospitalization, Other)
  Sender: FDA-Public Use
  Company Number: JP-shionogi-202404420_EXJ_P_1

PATIENT
  Age: 60 Year
  Sex: Male
  Weight: 64.1 kg

DRUGS (6)
  1. CYCLOPHOSPHAMIDE [Suspect]
     Active Substance: CYCLOPHOSPHAMIDE
     Dosage: 40 MG/KG, ONE TIME IN ONE DAY (DOSAGE FORM: INJECTION)
     Route: 065
     Dates: start: 20240207, end: 20240207
  2. TACROLIMUS [Concomitant]
     Active Substance: TACROLIMUS
     Indication: Prophylaxis against transplant rejection
     Dosage: 4 DF, EVERY DAY
     Route: 048
     Dates: start: 20240508
  3. SULFAMETHOXAZOLE\TRIMETHOPRIM [Concomitant]
     Active Substance: SULFAMETHOXAZOLE\TRIMETHOPRIM
     Indication: Infection prophylaxis
     Dosage: 1 DF, EVERY DAY
     Route: 048
     Dates: start: 20240211
  4. NIFEDIPINE [Concomitant]
     Active Substance: NIFEDIPINE
     Indication: Hypertension
     Dosage: 1 DF, EVERY DAY, NIFEDIPINE CR
     Route: 048
     Dates: start: 20240301
  5. VONOPRAZAN FUMARATE [Concomitant]
     Active Substance: VONOPRAZAN FUMARATE
     Indication: Gastritis prophylaxis
     Dosage: 1 DF, EVERY DAY
     Route: 048
     Dates: start: 20240211
  6. URSODIOL [Concomitant]
     Active Substance: URSODIOL
     Indication: Hypercholia
     Dosage: 100 MG, EVERY 8 HOURS
     Route: 048
     Dates: start: 20240211

REACTIONS (1)
  - Bile duct stenosis [Recovering/Resolving]

NARRATIVE: CASE EVENT DATE: 20240611
